FAERS Safety Report 4367587-9 (Version None)
Quarter: 2004Q2

REPORT INFORMATION
  Report Type: 
  Country: None (occurrence: None)
  Receive Date: 20040601
  Receipt Date: 20030319
  Transmission Date: 20050107
  Serious: Yes (Life-Threatening, Hospitalization)
  Sender: FDA-Public Use
  Company Number: US-MERCK-0303USA02027

PATIENT
  Age: 70 Year
  Sex: Female

DRUGS (8)
  1. TYLENOL W/ CODEINE NO. 3 [Concomitant]
     Route: 065
  2. PERCOCET [Concomitant]
     Route: 065
  3. ASCORBIC ACID [Concomitant]
     Route: 065
  4. BETA CAROTENE [Concomitant]
     Route: 065
  5. CENTRUM [Concomitant]
     Route: 065
  6. VIOXX [Suspect]
     Indication: BACK PAIN
     Route: 048
     Dates: start: 20000107, end: 20000201
  7. ZOCOR [Concomitant]
     Route: 065
  8. VITAMIN E [Concomitant]
     Route: 065

REACTIONS (25)
  - ACUTE RESPIRATORY DISTRESS SYNDROME [None]
  - ASPIRATION [None]
  - ATRIAL FIBRILLATION [None]
  - BREAST TENDERNESS [None]
  - CARDIO-RESPIRATORY ARREST [None]
  - COAGULOPATHY [None]
  - CORONARY ARTERY DISEASE [None]
  - DEPRESSION [None]
  - DIARRHOEA [None]
  - DYSPNOEA EXERTIONAL [None]
  - EXTRADURAL ABSCESS [None]
  - FATIGUE [None]
  - HAEMATOCHEZIA [None]
  - HYPERSENSITIVITY [None]
  - HYPOKALAEMIA [None]
  - INTERVERTEBRAL DISC DISORDER [None]
  - INTERVERTEBRAL DISCITIS [None]
  - MULTI-ORGAN FAILURE [None]
  - MYOCARDIAL INFARCTION [None]
  - PANCREATITIS [None]
  - RENAL TUBULAR NECROSIS [None]
  - SEPSIS [None]
  - UPPER RESPIRATORY TRACT INFECTION [None]
  - VENTRICULAR FIBRILLATION [None]
  - VENTRICULAR TACHYCARDIA [None]
